FAERS Safety Report 8817402 (Version 5)
Quarter: 2014Q1

REPORT INFORMATION
  Report Type: Report from Study
  Country: US (occurrence: US)
  Receive Date: 20121004
  Receipt Date: 20140131
  Transmission Date: 20141002
  Serious: Yes (Hospitalization)
  Sender: FDA-Public Use
  Company Number: US-PFIZER INC-2012233824

PATIENT
  Age: 70 Year
  Sex: Male
  Weight: 79 kg

DRUGS (11)
  1. CRIZOTINIB [Suspect]
     Indication: METASTATIC CARCINOMA OF THE BLADDER
     Dosage: 250 MG, 2X/DAY
     Route: 048
     Dates: start: 20120906, end: 20120920
  2. METOPROLOL TARTRATE [Concomitant]
     Indication: HYPERTENSION
     Dosage: 25 MG, 2X/DAY, AS NEEDED
     Route: 048
     Dates: start: 20090713, end: 20120923
  3. ACETYLCYSTEINE [Concomitant]
     Indication: SUPPLEMENTATION THERAPY
     Dosage: 600 MG, UNK
     Route: 048
     Dates: start: 20120620
  4. FEXOFENADINE [Concomitant]
     Indication: HYPERSENSITIVITY
     Dosage: 180 MG, 1X/DAY
     Route: 048
     Dates: start: 20090713
  5. LIDOCAINE, PRILOCAINE [Concomitant]
     Indication: PAIN PROPHYLAXIS
     Dosage: UNK
     Route: 061
     Dates: start: 20110303
  6. ONDANSETRON [Concomitant]
     Indication: NAUSEA
     Dosage: 8 MG, AS NEEDED
     Route: 048
     Dates: start: 20120502
  7. POTASSIUM CHLORIDE [Concomitant]
     Indication: SUPPLEMENTATION THERAPY
     Dosage: 20 MEQ, AS NEEDED
     Route: 048
     Dates: start: 20090713
  8. PROMETHAZINE [Concomitant]
     Indication: NAUSEA
     Dosage: 25 MG, Q 4 HRS, AS NEEDED
     Route: 054
     Dates: start: 20120516
  9. PROMETHAZINE [Concomitant]
     Indication: NAUSEA
     Dosage: 12.5 MG, Q 4 HRS, AS NEEDED
     Route: 048
     Dates: start: 20120516
  10. ZOCOR [Concomitant]
     Indication: HYPERCHOLESTEROLAEMIA
     Dosage: 80 MG, 1X/DAY (Q HS)
     Route: 048
     Dates: start: 20120516
  11. MULTIVITAMINS [Concomitant]
     Indication: SUPPLEMENTATION THERAPY
     Dosage: UNK
     Dates: start: 20090713

REACTIONS (2)
  - Hypotension [Recovered/Resolved]
  - Dehydration [Recovered/Resolved]
